FAERS Safety Report 5301445-8 (Version None)
Quarter: 2007Q2

REPORT INFORMATION
  Report Type: 
  Country: None (occurrence: None)
  Receive Date: 20070412
  Receipt Date: 20070402
  Transmission Date: 20071010
  Serious: Yes (Other)
  Sender: FDA-Public Use
  Company Number: 2007313916

PATIENT
  Age: 61 Year
  Sex: Female
  Weight: 49.9 kg

DRUGS (6)
  1. BENADRYL [Suspect]
     Indication: LIP SWELLING
     Dosage: 1 TABLESPOON ONCE, ORAL
     Route: 048
     Dates: start: 20070301
  2. BENADRYL [Suspect]
     Indication: SWELLING FACE
     Dosage: ORAL
     Route: 048
     Dates: start: 20070402
  3. SEROQUEL [Suspect]
     Indication: DEPRESSION
     Dosage: (25 MG) ONCE DAILY
     Dates: start: 20070328
  4. NORVASC [Concomitant]
  5. ZOLOFT [Concomitant]
  6. DIAZEPAM [Concomitant]

REACTIONS (5)
  - ANGIOEDEMA [None]
  - CONDITION AGGRAVATED [None]
  - DRUG INEFFECTIVE [None]
  - EXPIRED DRUG ADMINISTERED [None]
  - MENTAL DISORDER [None]
